FAERS Safety Report 5673028-1 (Version None)
Quarter: 2008Q1

REPORT INFORMATION
  Report Type: 
  Country: None (occurrence: None)
  Receive Date: 20080319
  Receipt Date: 20080131
  Transmission Date: 20080703
  Serious: No
  Sender: FDA-Public Use
  Company Number: US-ASTRAZENECA-2008UW02230

PATIENT
  Age: 61 Year
  Sex: Male
  Weight: 90.7 kg

DRUGS (6)
  1. SYMBICORT [Suspect]
     Indication: DYSPNOEA
     Dosage: 2 X (160/4.5 UG) BID
     Route: 055
     Dates: start: 20080126
  2. ACIPHEX [Concomitant]
  3. ZETIA [Concomitant]
  4. PREDNISONE [Concomitant]
  5. COUGH MEDICINE [Concomitant]
  6. CODEINE SUL TAB [Concomitant]

REACTIONS (1)
  - NIGHT SWEATS [None]
